FAERS Safety Report 7148696-8 (Version None)
Quarter: 2010Q4

REPORT INFORMATION
  Report Type: 
  Country: None (occurrence: None)
  Receive Date: 20101209
  Receipt Date: 20101206
  Transmission Date: 20110411
  Serious: Yes (Other)
  Sender: FDA-Public Use
  Company Number: BR-ROCHE-731500

PATIENT
  Sex: Female
  Weight: 75 kg

DRUGS (3)
  1. ACTEMRA [Suspect]
     Dosage: DOSE: 200MG/10 ML
     Route: 042
     Dates: start: 20100301
  2. PREDNISONE [Suspect]
     Route: 048
     Dates: start: 20050101
  3. PREDNISONE [Suspect]
     Dosage: DOSE REDUCED
     Route: 048

REACTIONS (1)
  - WEIGHT INCREASED [None]
